FAERS Safety Report 21297881 (Version 2)
Quarter: 2022Q4

REPORT INFORMATION
  Report Type: Spontaneous
  Country: ES (occurrence: ES)
  Receive Date: 20220906
  Receipt Date: 20221010
  Transmission Date: 20230112
  Serious: Yes (Hospitalization, Other)
  Sender: FDA-Public Use
  Company Number: ES-PFIZER INC-PV202200054486

PATIENT
  Age: 40 Year
  Sex: Female

DRUGS (5)
  1. VYNDAQEL [Suspect]
     Active Substance: TAFAMIDIS MEGLUMINE
     Indication: Hereditary neuropathic amyloidosis
     Dosage: UNK
     Dates: start: 2018
  2. VYNDAQEL [Suspect]
     Active Substance: TAFAMIDIS MEGLUMINE
     Dosage: 20 MG
     Dates: start: 201901, end: 202207
  3. LISINOPRIL [Concomitant]
     Active Substance: LISINOPRIL
     Dosage: UNK
     Dates: start: 202107
  4. PROPRANOLOL HYDROCHLORIDE [Concomitant]
     Active Substance: PROPRANOLOL HYDROCHLORIDE
     Dosage: 1/2-0-0
  5. ENALAPRIL [Concomitant]
     Active Substance: ENALAPRIL
     Dosage: 1-0-0
     Dates: end: 202107

REACTIONS (11)
  - Abdominal pain upper [Unknown]
  - Vomiting [Unknown]
  - Polyneuropathy [Unknown]
  - Disease progression [Unknown]
  - Early satiety [Unknown]
  - Dysphagia [Unknown]
  - Orthostatic hypotension [Unknown]
  - Hypoaesthesia [Unknown]
  - Treatment noncompliance [Unknown]
  - Weight fluctuation [Unknown]
  - Mental disorder [Unknown]

NARRATIVE: CASE EVENT DATE: 20190101
